FAERS Safety Report 14669687 (Version 4)
Quarter: 2021Q3

REPORT INFORMATION
  Report Type: Spontaneous
  Country: US (occurrence: US)
  Receive Date: 20180322
  Receipt Date: 20210726
  Transmission Date: 20211014
  Serious: Yes (Death, Other)
  Sender: FDA-Public Use
  Company Number: US-GLAXOSMITHKLINE-US2018GSK048589

PATIENT
  Age: 57 Year
  Sex: Male

DRUGS (2)
  1. PREVACID 24 HR [Suspect]
     Active Substance: LANSOPRAZOLE
     Indication: GASTROOESOPHAGEAL REFLUX DISEASE
     Dosage: 15 MG, 1X QD
     Route: 048
     Dates: start: 2010, end: 2013
  2. NEXIUM 24HR [Suspect]
     Active Substance: ESOMEPRAZOLE MAGNESIUM
     Indication: GASTROOESOPHAGEAL REFLUX DISEASE
     Dosage: 20 MG,1X QD
     Route: 065
     Dates: start: 2014, end: 2018

REACTIONS (10)
  - Post micturition dribble [Unknown]
  - Renal failure [Unknown]
  - Chronic kidney disease [Unknown]
  - Death [Fatal]
  - Nocturia [Unknown]
  - Pollakiuria [Unknown]
  - Urinary hesitation [Unknown]
  - Nephrosclerosis [Unknown]
  - Dysuria [Unknown]
  - Polyuria [Unknown]

NARRATIVE: CASE EVENT DATE: 20150923
